FAERS Safety Report 14584130 (Version 1)
Quarter: 2018Q1

REPORT INFORMATION
  Report Type: Spontaneous
  Country: US (occurrence: US)
  Receive Date: 20180228
  Receipt Date: 20180228
  Transmission Date: 20180509
  Serious: No
  Sender: FDA-Public Use
  Company Number: US-JNJFOC-20180216355

PATIENT
  Age: 69 Year
  Sex: Male
  Weight: 90.9 kg

DRUGS (1)
  1. INFLIXIMAB, RECOMBINANT [Suspect]
     Active Substance: INFLIXIMAB
     Indication: DIARRHOEA
     Route: 042

REACTIONS (3)
  - Infection [Unknown]
  - Product use in unapproved indication [Unknown]
  - Off label use [Unknown]
